FAERS Safety Report 6149308-2 (Version None)
Quarter: 2009Q2

REPORT INFORMATION
  Report Type: 
  Country: None (occurrence: None)
  Receive Date: 20090409
  Receipt Date: 20090331
  Transmission Date: 20091009
  Serious: Yes (Disabling)
  Sender: FDA-Public Use
  Company Number: PT-ASTRAZENECA-2009AC01022

PATIENT
  Age: 728 Month
  Sex: Female
  Weight: 60 kg

DRUGS (4)
  1. CRESTOR [Suspect]
     Indication: HYPERCHOLESTEROLAEMIA
     Route: 048
     Dates: start: 20090301, end: 20090301
  2. DIOSMIN [Concomitant]
     Indication: VENOUS INSUFFICIENCY
     Route: 048
  3. BROMELAINS [Concomitant]
     Indication: OROPHARYNGEAL PAIN
     Route: 048
  4. VITAMIN COMPLEX [Concomitant]

REACTIONS (3)
  - ARTHRALGIA [None]
  - JOINT SWELLING [None]
  - MUSCULAR WEAKNESS [None]
